FAERS Safety Report 6042696-7 (Version None)
Quarter: 2009Q1

REPORT INFORMATION
  Report Type: 
  Country: None (occurrence: None)
  Receive Date: 20090119
  Receipt Date: 20090113
  Transmission Date: 20090719
  Serious: Yes (Other)
  Sender: FDA-Public Use
  Company Number: PHHY2009MX01421

PATIENT
  Age: 61 Year
  Sex: Female

DRUGS (1)
  1. TEGRETOL [Suspect]
     Indication: NEURALGIA
     Dosage: 200 MG 2 TABLETS DAILY
     Route: 048
     Dates: start: 20080801

REACTIONS (1)
  - INFLUENZA [None]
